FAERS Safety Report 4802222-4 (Version None)
Quarter: 2005Q4

REPORT INFORMATION
  Report Type: 
  Country: None (occurrence: None)
  Receive Date: 20051011
  Receipt Date: 20050930
  Transmission Date: 20060501
  Serious: Yes (Hospitalization)
  Sender: FDA-Public Use
  Company Number: 2005-03708

PATIENT
  Age: 64 Year
  Sex: Female

DRUGS (6)
  1. PERPHENAZINE/AMITRIPTYLINE HYDROCHLORIDE  (WATSON)(PERPHENAZINE, AMITR [Suspect]
     Indication: DEPRESSION
     Dosage: 200 MG, QHS, ORAL
     Route: 048
  2. LABETALOL HCL [Suspect]
     Indication: HYPERTENSION
     Dosage: 600 MG, TID, ORAL
     Route: 048
  3. RAMIPRIL [Concomitant]
  4. IRBESARTAN [Concomitant]
  5. ESOMEPRAZOLE  (ESOMEPRAZOLE) [Concomitant]
  6. MIDRODRINE [Concomitant]

REACTIONS (5)
  - ANTIDEPRESSANT DRUG LEVEL ABOVE THERAPEUTIC [None]
  - DELIRIUM [None]
  - DRUG INTERACTION [None]
  - ORTHOSTATIC HYPOTENSION [None]
  - RESPIRATORY DISTRESS [None]
